FAERS Safety Report 20148528 (Version 4)
Quarter: 2022Q1

REPORT INFORMATION
  Report Type: Spontaneous
  Country: CA (occurrence: CA)
  Receive Date: 20211205
  Receipt Date: 20220126
  Transmission Date: 20220424
  Serious: Yes (Other)
  Sender: FDA-Public Use
  Company Number: CA-CELLTRION INC.-2021CA006546

PATIENT

DRUGS (6)
  1. INFLECTRA [Suspect]
     Active Substance: INFLIXIMAB-DYYB
     Indication: Crohn^s disease
     Dosage: 5 MG/KG, (INDUCTION: WEEK 0, 2 AND 6, MAINTENANCE EVERY 8 WEEKS)
     Route: 042
     Dates: start: 20210824
  2. INFLECTRA [Suspect]
     Active Substance: INFLIXIMAB-DYYB
     Dosage: 500 MG, (INDUCTION: WEEK 0, 2 AND 6, MAINTENANCE EVERY 8 WEEKS)
     Route: 042
     Dates: start: 20210824, end: 20211130
  3. INFLECTRA [Suspect]
     Active Substance: INFLIXIMAB-DYYB
     Dosage: 5 MG/KG, (INDUCTION: WEEK 0, 2 AND 6, MAINTENANCE EVERY 8 WEEKS)
     Route: 042
     Dates: start: 20210824
  4. INFLECTRA [Suspect]
     Active Substance: INFLIXIMAB-DYYB
     Dosage: 5 MG/KG, (INDUCTION: WEEK 0, 2 AND 6, MAINTENANCE EVERY 8 WEEKS)
     Route: 042
     Dates: start: 20210907
  5. INFLECTRA [Suspect]
     Active Substance: INFLIXIMAB-DYYB
     Dosage: 5 MG/KG INDUCTION: WEEK 0, 2 AND 6, MAINTENANCE EVERY 8 WEEKS
     Route: 042
     Dates: start: 20211005
  6. INFLECTRA [Suspect]
     Active Substance: INFLIXIMAB-DYYB
     Dosage: 5 MG/KG INDUCTION: WEEK 0, 2 AND 6, MAINTENANCE EVERY 8 WEEKS
     Route: 042
     Dates: start: 20211130

REACTIONS (8)
  - Pneumonia [Unknown]
  - Dermatomyositis [Unknown]
  - Heart rate decreased [Unknown]
  - Infusion related reaction [Unknown]
  - Rash [Not Recovered/Not Resolved]
  - Dry skin [Not Recovered/Not Resolved]
  - Skin irritation [Not Recovered/Not Resolved]
  - Condition aggravated [Not Recovered/Not Resolved]

NARRATIVE: CASE EVENT DATE: 20210101
